FAERS Safety Report 9687496 (Version 2)
Quarter: 2013Q4

REPORT INFORMATION
  Report Type: Spontaneous
  Country: FR (occurrence: FR)
  Receive Date: 20131114
  Receipt Date: 20131115
  Transmission Date: 20140711
  Serious: Yes (Hospitalization)
  Sender: FDA-Public Use
  Company Number: FR-BRISTOL-MYERS SQUIBB COMPANY-19808336

PATIENT
  Age: 80 Year
  Sex: Female

DRUGS (2)
  1. MITOMYCIN-C [Suspect]
     Indication: ANAL CANCER
     Route: 042
     Dates: start: 20130211, end: 20130416
  2. 5-FU [Suspect]
     Indication: ANAL CANCER
     Route: 042
     Dates: start: 20130211, end: 20130416

REACTIONS (1)
  - Interstitial lung disease [Recovered/Resolved]
